FAERS Safety Report 19583743 (Version 2)
Quarter: 2021Q4

REPORT INFORMATION
  Report Type: Spontaneous
  Country: IN (occurrence: IN)
  Receive Date: 20210720
  Receipt Date: 20211221
  Transmission Date: 20220303
  Serious: Yes (Other)
  Sender: FDA-Public Use
  Company Number: IN-PFIZER INC-2021087068

PATIENT
  Age: 76 Year
  Sex: Female

DRUGS (4)
  1. PALBOCICLIB [Suspect]
     Active Substance: PALBOCICLIB
     Indication: Breast cancer metastatic
     Dosage: 125 MG, 1X/DAY
     Route: 048
     Dates: start: 20200205
  2. PALBOCICLIB [Suspect]
     Active Substance: PALBOCICLIB
     Dosage: 125 MG, 1X/DAY
     Route: 048
     Dates: start: 20200806
  3. LETROZOLE [Concomitant]
     Active Substance: LETROZOLE
     Dosage: 2.5 MG
     Dates: start: 20200205
  4. Zolasta [Concomitant]
     Dosage: 4 MG
     Dates: start: 20200205

REACTIONS (9)
  - Haemoglobin decreased [Not Recovered/Not Resolved]
  - Occult blood positive [Unknown]
  - Bone pain [Unknown]
  - Nasopharyngitis [Recovered/Resolved]
  - Respiratory rate increased [Unknown]
  - Weight increased [Unknown]
  - White blood cell count decreased [Unknown]
  - Blood pressure systolic increased [Unknown]
  - Off label use [Unknown]

NARRATIVE: CASE EVENT DATE: 20200226
